FAERS Safety Report 5495411-X (Version None)
Quarter: 2007Q4

REPORT INFORMATION
  Report Type: 
  Country: None (occurrence: None)
  Receive Date: 20071023
  Receipt Date: 20071016
  Transmission Date: 20080405
  Serious: Yes (Other)
  Sender: FDA-Public Use
  Company Number: WAES 0710USA03220

PATIENT
  Age: 30 Year
  Sex: Male
  Weight: 74.8435 kg

DRUGS (2)
  1. DECADRON [Suspect]
     Dosage: 4MG/DAILY/PO
     Route: 048
  2. TEMOZOLOMIDE [Suspect]
     Indication: GLIOBLASTOMA MULTIFORME
     Dosage: 140 MG/DAILY/PO
     Route: 048
     Dates: start: 20070828

REACTIONS (2)
  - CATHETER SITE RELATED REACTION [None]
  - JUGULAR VEIN THROMBOSIS [None]
